FAERS Safety Report 11341953 (Version 2)
Quarter: 2015Q4

REPORT INFORMATION
  Report Type: Report from Study
  Country: US (occurrence: US)
  Receive Date: 20150805
  Receipt Date: 20151009
  Transmission Date: 20160304
  Serious: Yes (Other)
  Sender: FDA-Public Use
  Company Number: US-AMGEN-USASP2015077488

PATIENT
  Sex: Male

DRUGS (1)
  1. NPLATE [Suspect]
     Active Substance: ROMIPLOSTIM
     Indication: IMMUNE THROMBOCYTOPENIC PURPURA
     Dosage: UNK, UNK
     Route: 065
     Dates: start: 2013

REACTIONS (8)
  - Blood blister [Unknown]
  - Platelet count abnormal [Unknown]
  - Pain [Unknown]
  - Haemorrhage [Unknown]
  - Skin abrasion [Unknown]
  - Contusion [Unknown]
  - Venous injury [Unknown]
  - Epistaxis [Unknown]
